FAERS Safety Report 16159237 (Version 2)
Quarter: 2019Q2

REPORT INFORMATION
  Report Type: Spontaneous
  Country: BR (occurrence: BR)
  Receive Date: 20190404
  Receipt Date: 20190411
  Transmission Date: 20190711
  Serious: Yes (Hospitalization, Other)
  Sender: FDA-Public Use
  Company Number: BR-PFIZER INC-2019141998

PATIENT
  Age: 85 Year
  Sex: Male
  Weight: 67 kg

DRUGS (8)
  1. RIVOTRIL [Concomitant]
     Active Substance: CLONAZEPAM
     Dosage: 1 MG, UNK
     Dates: start: 2014, end: 201811
  2. TECTA [Concomitant]
     Active Substance: PANTOPRAZOLE MAGNESIUM
     Dosage: UNK
     Dates: start: 2009
  3. SOMALGIN CARDIO [Concomitant]
     Active Substance: ASPIRIN\DIHYDROXYALUMINUM AMINOACETATE ANHYDROUS\MAGNESIUM CARBONATE
     Indication: THROMBOSIS
     Dosage: UNK
     Dates: start: 1999
  4. CARDURAN XL [Suspect]
     Active Substance: DOXAZOSIN MESYLATE
     Indication: BENIGN PROSTATIC HYPERPLASIA
     Dosage: 4 MG, DAILY (1 TABLET PER DAY)
     Dates: start: 2009
  5. CONCARDIO [Concomitant]
     Active Substance: BISOPROLOL FUMARATE
     Dosage: UNK
     Dates: start: 2007
  6. RIVOTRIL [Concomitant]
     Active Substance: CLONAZEPAM
     Dosage: 2 MG, UNK
     Dates: start: 201811
  7. SEVELAMER HYDROCHLORIDE. [Concomitant]
     Active Substance: SEVELAMER HYDROCHLORIDE
     Dosage: 3 TABLETS PER DAY
  8. ROCALTROL [Concomitant]
     Active Substance: CALCITRIOL
     Dosage: 1 TABLET PER DAY

REACTIONS (13)
  - Condition aggravated [Recovered/Resolved]
  - Blood sodium increased [Unknown]
  - Cardiac failure [Unknown]
  - Blood creatinine increased [Unknown]
  - Anaemia [Not Recovered/Not Resolved]
  - Arrhythmia [Recovered/Resolved]
  - Blood urea increased [Unknown]
  - Blood potassium increased [Unknown]
  - Bradycardia [Unknown]
  - Fatigue [Not Recovered/Not Resolved]
  - Dyspnoea [Unknown]
  - Confusional state [Unknown]
  - Cardiac failure [Unknown]

NARRATIVE: CASE EVENT DATE: 2016
